FAERS Safety Report 22234521 (Version 1)
Quarter: 2023Q2

REPORT INFORMATION
  Report Type: Other
  Country: CA (occurrence: CA)
  Receive Date: 20230420
  Receipt Date: 20230420
  Transmission Date: 20230721
  Serious: Yes (Other)
  Sender: FDA-Public Use
  Company Number: CA-GLENMARK PHARMACEUTICALS-2023GMK081124

PATIENT

DRUGS (1)
  1. DROSPIRENONE\ETHINYL ESTRADIOL [Suspect]
     Active Substance: DROSPIRENONE\ETHINYL ESTRADIOL
     Indication: Oral contraception
     Dosage: UNK
     Route: 048

REACTIONS (8)
  - Anaemia [Unknown]
  - Blood iron decreased [Unknown]
  - Photophobia [Unknown]
  - Retinal artery occlusion [Unknown]
  - Ischaemic stroke [Unknown]
  - Dizziness [Unknown]
  - Blindness unilateral [Unknown]
  - Nausea [Unknown]
